APPROVED DRUG PRODUCT: SPIRONOLACTONE W/ HYDROCHLOROTHIAZIDE
Active Ingredient: HYDROCHLOROTHIAZIDE; SPIRONOLACTONE
Strength: 25MG;25MG
Dosage Form/Route: TABLET;ORAL
Application: A088054 | Product #001
Applicant: PUREPAC PHARMACEUTICAL CO
Approved: Aug 18, 1983 | RLD: No | RS: No | Type: DISCN